FAERS Safety Report 20973317 (Version 11)
Quarter: 2024Q1

REPORT INFORMATION
  Report Type: Spontaneous
  Country: CA (occurrence: CA)
  Receive Date: 20220617
  Receipt Date: 20240305
  Transmission Date: 20240410
  Serious: Yes (Other)
  Sender: FDA-Public Use
  Company Number: CA-CELLTRION INC.-2022CA008631

PATIENT

DRUGS (25)
  1. INFLECTRA [Suspect]
     Active Substance: INFLIXIMAB-DYYB
     Indication: Crohn^s disease
     Dosage: 5 MG/KG, DOSE TO BE ROUNDED UP IF LARGER OR EQUAL TO 50MG, WEEKS 0,2,6, THEN EVERY 8 WEEKS
     Route: 042
     Dates: start: 20220427
  2. INFLECTRA [Suspect]
     Active Substance: INFLIXIMAB-DYYB
     Dosage: 5 MG/KG, DOSE TO BE ROUNDED UP IF LARGER OR EQUAL TO 50MG, WEEKS 0,2,6, THEN EVERY 8 WEEKS
     Route: 042
     Dates: start: 20220427
  3. INFLECTRA [Suspect]
     Active Substance: INFLIXIMAB-DYYB
     Dosage: 5 MG/KG, DOSE TO BE ROUNDED UP IF LARGER OR EQUAL TO 50MG, WEEKS 0,2,6, THEN EVERY 8 WEEKS
     Route: 042
     Dates: start: 20220427
  4. INFLECTRA [Suspect]
     Active Substance: INFLIXIMAB-DYYB
     Dosage: 5 MG/KG, DOSE TO BE ROUNDED UP IF LARGER OR EQUAL TO 50MG, WEEKS 0,2,6, THEN EVERY 8 WEEKS
     Route: 042
     Dates: start: 20220510
  5. INFLECTRA [Suspect]
     Active Substance: INFLIXIMAB-DYYB
     Dosage: 5 MG/KG, DOSE TO BE ROUNDED UP IF LARGER OR EQUAL TO 50MG, WEEKS 0,2,6, THEN EVERY 8 WEEKS
     Route: 042
     Dates: start: 20220607
  6. INFLECTRA [Suspect]
     Active Substance: INFLIXIMAB-DYYB
     Dosage: 5 MG/KG, DOSE TO BE ROUNDED UP IF LARGER OR EQUAL TO 50MG, WEEKS 0,2,6, THEN EVERY 8 WEEKS
     Route: 042
     Dates: start: 20220607
  7. INFLECTRA [Suspect]
     Active Substance: INFLIXIMAB-DYYB
     Dosage: 5 MG/KG, DOSE TO BE ROUNDED UP IF LARGER OR EQUAL TO 50MG, WEEKS 0,2,6, THEN EVERY 8 WEEKS
     Route: 042
     Dates: start: 20220623
  8. INFLECTRA [Suspect]
     Active Substance: INFLIXIMAB-DYYB
     Dosage: 600 MG, DOSE TO BE ROUNDED UP IF LARGER OR EQUAL TO 50MG, WEEKS 0,2,6, THEN EVERY 8 WEEKS
     Route: 042
     Dates: start: 20220804
  9. INFLECTRA [Suspect]
     Active Substance: INFLIXIMAB-DYYB
     Dosage: 600 MG(5 MG/KG), ROUNDED UP TO SUPERIOR VIAL IF MORE OR EQUAL TO 50MG,WEEKS 0,2,6, THEN EVERY 8WEEKS
     Route: 042
     Dates: start: 20220929
  10. INFLECTRA [Suspect]
     Active Substance: INFLIXIMAB-DYYB
     Dosage: 600 MG (SUPPOSED TO RECEIVE 5 MG/KG, WEEKS0,2,6, THEN Q8WEEKS)
     Route: 042
     Dates: start: 20221125
  11. INFLECTRA [Suspect]
     Active Substance: INFLIXIMAB-DYYB
     Dosage: 700 MG (SUPPOSED TO RECEIVE 5 MG/KG, WEEKS0,2,6, THEN Q8WEEKS)
     Route: 042
     Dates: start: 20230127
  12. INFLECTRA [Suspect]
     Active Substance: INFLIXIMAB-DYYB
     Dosage: 700 MG (SUPPOSED TO RECEIVE 5 MG/KG, WEEKS0,2,6, THEN Q8WEEKS)
     Route: 042
     Dates: start: 20230127
  13. INFLECTRA [Suspect]
     Active Substance: INFLIXIMAB-DYYB
     Dosage: 700MG (5MG/KG) Q7 WEEKS AND 4 DAYS
     Route: 042
     Dates: start: 20230321
  14. INFLECTRA [Suspect]
     Active Substance: INFLIXIMAB-DYYB
     Dosage: 5 MG/KG DOSE TO BE ROUNDED UP IF LARGER OR EQUAL TO 50MG. WEEKS0,2,6, THEN Q8WEEKS
     Route: 042
     Dates: start: 20230515
  15. INFLECTRA [Suspect]
     Active Substance: INFLIXIMAB-DYYB
     Dosage: 5 MG/KG DOSE TO BE ROUNDED UP IF LARGER OR EQUAL TO 50MG. WEEKS0,2,6, THEN Q8WEEKS
     Route: 042
     Dates: start: 20230515
  16. INFLECTRA [Suspect]
     Active Substance: INFLIXIMAB-DYYB
     Dosage: 700 MG 5MG/KG EVERY 8 WEEKS
     Route: 042
     Dates: start: 20230713
  17. INFLECTRA [Suspect]
     Active Substance: INFLIXIMAB-DYYB
     Dosage: 700 MG 5MG/KG EVERY 8 WEEKS
     Route: 042
     Dates: start: 20230908
  18. INFLECTRA [Suspect]
     Active Substance: INFLIXIMAB-DYYB
     Dosage: 5 MG/KG, DOSE TO BE ROUNDED UP IF LARGER OR EQUAL TO 50MG. WEEKS0,2,6, THEN Q8WEEKS
     Route: 042
     Dates: start: 20231229
  19. INFLECTRA [Suspect]
     Active Substance: INFLIXIMAB-DYYB
     Dosage: 5 MG/KG, DOSE TO BE ROUNDED UP IF LARGER OR EQUAL TO 50MG. WEEKS0,2,6, THEN Q8WEEKS (700MG, 8 WEEKS)
     Route: 042
     Dates: start: 20240223
  20. CORTISONE [Concomitant]
     Active Substance: CORTISONE
     Dosage: UNK
  21. CORTISONE [Concomitant]
     Active Substance: CORTISONE
     Dosage: UNK
  22. PANTOPRAZOLE SODIUM [Concomitant]
     Active Substance: PANTOPRAZOLE SODIUM
     Dosage: 40 MG, UNKNOWN FREQUENCY
     Route: 065
     Dates: start: 20220425, end: 20220430
  23. PREDNISONE [Concomitant]
     Active Substance: PREDNISONE
     Dosage: 40 MG, 1X/DAY
     Route: 048
     Dates: start: 20220324
  24. PREDNISONE [Concomitant]
     Active Substance: PREDNISONE
     Dosage: 40 MG, 1X/DAY
     Route: 048
     Dates: start: 20220324
  25. TYLENOL [Concomitant]
     Active Substance: ACETAMINOPHEN
     Dosage: 1 DF
     Route: 065

REACTIONS (16)
  - Weight increased [Unknown]
  - Product availability issue [Unknown]
  - Therapeutic response shortened [Unknown]
  - Condition aggravated [Not Recovered/Not Resolved]
  - Arthralgia [Recovered/Resolved]
  - Aphthous ulcer [Recovered/Resolved]
  - Headache [Not Recovered/Not Resolved]
  - Oropharyngeal pain [Not Recovered/Not Resolved]
  - Cough [Not Recovered/Not Resolved]
  - Pyrexia [Not Recovered/Not Resolved]
  - COVID-19 [Not Recovered/Not Resolved]
  - Blood pressure increased [Recovered/Resolved]
  - Musculoskeletal stiffness [Recovered/Resolved]
  - Burning sensation [Recovered/Resolved]
  - Feeling of body temperature change [Recovered/Resolved]
  - Off label use [Unknown]

NARRATIVE: CASE EVENT DATE: 20220101
